FAERS Safety Report 18611387 (Version 1)
Quarter: 2020Q4

REPORT INFORMATION
  Report Type: Spontaneous
  Country: US (occurrence: US)
  Receive Date: 20201214
  Receipt Date: 20201214
  Transmission Date: 20210114
  Serious: No
  Sender: FDA-Public Use
  Company Number: US-PFIZER INC-2020447386

PATIENT
  Age: 68 Year
  Sex: Female

DRUGS (2)
  1. CHANTIX [Suspect]
     Active Substance: VARENICLINE TARTRATE
     Indication: SMOKING CESSATION THERAPY
     Dosage: UNK (1MG)
  2. IRBESARTAN/HCTZ GA [Concomitant]
     Indication: BLOOD PRESSURE MEASUREMENT

REACTIONS (3)
  - Product prescribing issue [Unknown]
  - Panic reaction [Unknown]
  - Product dispensing error [Unknown]
